FAERS Safety Report 10629055 (Version 2)
Quarter: 2014Q4

REPORT INFORMATION
  Report Type: Spontaneous
  Country: US (occurrence: US)
  Receive Date: 20141205
  Receipt Date: 20141205
  Transmission Date: 20150529
  Serious: No
  Sender: FDA-Public Use
  Company Number: US-BRISTOL-MYERS SQUIBB COMPANY-21315262

PATIENT
  Age: 66 Year
  Sex: Female
  Weight: 53.51 kg

DRUGS (1)
  1. ABILIFY [Suspect]
     Active Substance: ARIPIPRAZOLE
     Indication: BIPOLAR DISORDER
     Dosage: ABILIFY 5 MG

REACTIONS (2)
  - Abnormal dreams [Unknown]
  - Hypertonic bladder [Unknown]
